FAERS Safety Report 4417688-1 (Version None)
Quarter: 2004Q2

REPORT INFORMATION
  Report Type: 
  Country: None (occurrence: None)
  Receive Date: 20040629
  Receipt Date: 20031204
  Transmission Date: 20050107
  Serious: Yes (Hospitalization, Other)
  Sender: FDA-Public Use
  Company Number: USA031253948

PATIENT
  Age: 76 Year
  Sex: Female
  Weight: 81 kg

DRUGS (4)
  1. HUMALOG MIX 75/25 [Suspect]
     Indication: DIABETES MELLITUS
     Dosage: 15 U/2 DAY
     Dates: start: 20010101
  2. AMARYL [Concomitant]
  3. GLUCOPHAGE [Concomitant]
  4. NEURONTIN [Concomitant]

REACTIONS (11)
  - ABDOMINAL PAIN UPPER [None]
  - BLOOD GLUCOSE INCREASED [None]
  - CATARACT [None]
  - CONFUSIONAL STATE [None]
  - DIABETIC NEUROPATHY [None]
  - HEADACHE [None]
  - INJECTION SITE HAEMORRHAGE [None]
  - INJECTION SITE PAIN [None]
  - JOINT RANGE OF MOTION DECREASED [None]
  - PNEUMONIA [None]
  - POLYARTHRITIS [None]
